FAERS Safety Report 10170672 (Version 2)
Quarter: 2014Q2

REPORT INFORMATION
  Report Type: Report from Study
  Country: US (occurrence: US)
  Receive Date: 20140514
  Receipt Date: 20140514
  Transmission Date: 20141212
  Serious: Yes (Hospitalization)
  Sender: FDA-Public Use
  Company Number: US-BIOGENIDEC-2007BI006393

PATIENT
  Age: 63 Year
  Sex: Male

DRUGS (10)
  1. AVONEX [Suspect]
     Indication: MULTIPLE SCLEROSIS
     Route: 030
     Dates: start: 19970501, end: 2003
  2. AVONEX [Suspect]
     Indication: MULTIPLE SCLEROSIS
     Route: 030
     Dates: start: 2003, end: 200305
  3. AUBAGIO [Concomitant]
  4. KLOR-CON [Concomitant]
     Route: 048
  5. LISINOPRIL [Concomitant]
     Route: 048
  6. BYSTOLIC [Concomitant]
     Route: 048
  7. LORAZEPAM [Concomitant]
     Route: 048
  8. CYANOCOBALAMIN [Concomitant]
  9. GABAPENTIN [Concomitant]
     Route: 048
  10. ATORVASTATIN CALCIUM [Concomitant]
     Route: 048

REACTIONS (5)
  - Cerebrovascular accident [Recovered/Resolved]
  - Arteriosclerosis [Unknown]
  - Thrombosis [Recovered/Resolved]
  - Gait apraxia [Unknown]
  - Dysphagia [Unknown]
